FAERS Safety Report 15415620 (Version 1)
Quarter: 2018Q3

REPORT INFORMATION
  Report Type: Spontaneous
  Country: JP (occurrence: JP)
  Receive Date: 20180922
  Receipt Date: 20180922
  Transmission Date: 20181010
  Serious: Yes (Life-Threatening, Hospitalization)
  Sender: FDA-Public Use
  Company Number: JP-ACCORD-048404

PATIENT
  Age: 59 Year
  Sex: Male
  Weight: 70.4 kg

DRUGS (3)
  1. ETOPOSIDE. [Suspect]
     Active Substance: ETOPOSIDE
     Indication: BLADDER CANCER STAGE IV
     Dosage: DAY 1?5
     Dates: start: 20111026
  2. CISPLATIN. [Suspect]
     Active Substance: CISPLATIN
     Indication: METASTASES TO LUNG
     Dosage: DAY 1
     Dates: start: 20111026
  3. IRINOTECAN [Suspect]
     Active Substance: IRINOTECAN
     Indication: BLADDER CANCER STAGE IV
     Dates: start: 20111026

REACTIONS (3)
  - Nausea [Unknown]
  - Drug ineffective [Unknown]
  - Treatment failure [Unknown]

NARRATIVE: CASE EVENT DATE: 2011
